FAERS Safety Report 5320426-1 (Version None)
Quarter: 2007Q1

REPORT INFORMATION
  Report Type: 
  Country: None (occurrence: None)
  Receive Date: 20070220
  Receipt Date: 20061207
  Transmission Date: 20070707
  Serious: No
  Sender: FDA-Public Use
  Company Number: WAES0612USA01318

PATIENT
  Age: 60 Year
  Sex: Female

DRUGS (8)
  1. JANUVIA [Suspect]
     Indication: DIABETES MELLITUS
     Dosage: 100 MG DAILY PO
     Route: 048
     Dates: start: 20061129
  2. AMITRIPTYLINE HCL [Concomitant]
  3. FORTAMET [Concomitant]
  4. LIPITOR [Concomitant]
  5. DOXYCYCLINE [Concomitant]
  6. HYDROCHLOROTHIAZIDE [Concomitant]
  7. QUINAPRIL HCL [Concomitant]
  8. SPIRONOLACTONE [Concomitant]

REACTIONS (1)
  - DECREASED APPETITE [None]
